FAERS Safety Report 11299045 (Version 1)
Quarter: 2015Q3

REPORT INFORMATION
  Report Type: Spontaneous
  Country: US (occurrence: US)
  Receive Date: 20150722
  Receipt Date: 20150722
  Transmission Date: 20151125
  Serious: No
  Sender: FDA-Public Use
  Company Number: US-ELI_LILLY_AND_COMPANY-US201207000192

PATIENT

DRUGS (1)
  1. HUMATROPE [Suspect]
     Active Substance: SOMATROPIN
     Indication: HYPOPITUITARISM
     Dosage: 4.0 MG, UNK
     Route: 058

REACTIONS (1)
  - Incorrect dose administered [Unknown]
